FAERS Safety Report 10187323 (Version 1)
Quarter: 2014Q2

REPORT INFORMATION
  Report Type: Spontaneous
  Country: US (occurrence: None)
  Receive Date: 20140520
  Receipt Date: 20140520
  Transmission Date: 20141212
  Serious: Yes (Other)
  Sender: FDA-Public Use
  Company Number: IPC201405-000217

PATIENT
  Sex: Male
  Weight: 86 kg

DRUGS (3)
  1. METOPROLOL TARTRATE [Suspect]
     Indication: ATRIAL FIBRILLATION
  2. CRESTOR (ROSUVASTATIN CALCIUM) (ROSUVASTATIN CALCIUM) [Concomitant]
  3. WARFARIN (WARFARIN) (WARFARIN) [Concomitant]

REACTIONS (7)
  - Amnesia [None]
  - Fibroma [None]
  - Fatigue [None]
  - Vertigo [None]
  - Dizziness [None]
  - Off label use [None]
  - Dermal cyst [None]
